FAERS Safety Report 7296963-X (Version None)
Quarter: 2011Q1

REPORT INFORMATION
  Report Type: 
  Country: None (occurrence: None)
  Receive Date: 20110204
  Receipt Date: 20110125
  Transmission Date: 20110831
  Serious: Yes (Hospitalization, Other)
  Sender: FDA-Public Use
  Company Number: 2011MA000811

PATIENT
  Age: 60 Year
  Sex: Female

DRUGS (10)
  1. SERTRALINE HYDROCHLORIDE [Suspect]
     Dosage: 100 MG; QD;
  2. DIAZEPAM [Suspect]
  3. CITALOPRAM HYDROBROMIDE TABLETS, 40 MG (PUREPAC) (CITALOPRAM HYDROBROM [Suspect]
  4. ATENOLOL [Suspect]
     Dosage: 25 MG; QD;
  5. SIMVASTATIN [Suspect]
     Dosage: 20 MG; QD;
  6. PROMETHAZINE [Suspect]
     Dosage: 50 MG;
  7. ZOPICLONE (ZOPICLONE) [Suspect]
     Indication: SLEEP DISORDER
     Dosage: 3.75 MG;
  8. DOSULEPIN (DOSULEPIN) [Suspect]
     Dosage: 50 MG; QD;
  9. PREGABALIN [Suspect]
     Indication: GENERALISED ANXIETY DISORDER
     Dosage: 50 MG; TID;
  10. ASPIRIN [Suspect]
     Dosage: 75 MG; QD;

REACTIONS (49)
  - SYNCOPE [None]
  - DECREASED APPETITE [None]
  - ANXIETY [None]
  - FEELING JITTERY [None]
  - TENSION [None]
  - HYPOCHONDRIASIS [None]
  - THINKING ABNORMAL [None]
  - AGGRESSION [None]
  - INITIAL INSOMNIA [None]
  - TREMOR [None]
  - HYPERHIDROSIS [None]
  - GASTROINTESTINAL DISORDER [None]
  - SUICIDAL IDEATION [None]
  - URINARY TRACT INFECTION [None]
  - NAUSEA [None]
  - VOMITING [None]
  - ADJUSTMENT DISORDER [None]
  - MACROCYTOSIS [None]
  - GENERALISED ANXIETY DISORDER [None]
  - DELUSION [None]
  - FATIGUE [None]
  - MULTIPLE DRUG OVERDOSE ACCIDENTAL [None]
  - DEPRESSED LEVEL OF CONSCIOUSNESS [None]
  - WEIGHT DECREASED [None]
  - CONDITION AGGRAVATED [None]
  - DRUG INEFFECTIVE [None]
  - ANAEMIA [None]
  - MIDDLE INSOMNIA [None]
  - TREATMENT NONCOMPLIANCE [None]
  - HOSTILITY [None]
  - IRRITABILITY [None]
  - PANIC ATTACK [None]
  - DIARRHOEA [None]
  - DISEASE RECURRENCE [None]
  - SOMATOFORM DISORDER [None]
  - AFFECTIVE DISORDER [None]
  - MALAISE [None]
  - LETHARGY [None]
  - ORAL MUCOSAL DISCOLOURATION [None]
  - MUSCLE ATROPHY [None]
  - PAIN [None]
  - MUSCLE TWITCHING [None]
  - FALL [None]
  - DIZZINESS [None]
  - PARTNER STRESS [None]
  - SPEECH DISORDER [None]
  - MYALGIA [None]
  - DEPRESSION [None]
  - CONFUSIONAL STATE [None]
